FAERS Safety Report 9364567 (Version 1)
Quarter: 2013Q2

REPORT INFORMATION
  Report Type: Spontaneous
  Country: KW (occurrence: KW)
  Receive Date: 20130624
  Receipt Date: 20130624
  Transmission Date: 20140414
  Serious: Yes (Hospitalization, Other)
  Sender: FDA-Public Use
  Company Number: PHHY2013KW062207

PATIENT
  Age: 6 Year
  Sex: Male

DRUGS (1)
  1. DEFERASIROX [Suspect]
     Indication: THALASSAEMIA BETA
     Dosage: 625 MG, DAILY
     Route: 048

REACTIONS (18)
  - Duodenal ulcer perforation [Unknown]
  - Shock [Unknown]
  - Peripheral coldness [Unknown]
  - Pulse pressure decreased [Unknown]
  - Decreased appetite [Unknown]
  - Gastrointestinal sounds abnormal [Unknown]
  - Blood albumin increased [Unknown]
  - Abdominal tenderness [Unknown]
  - Blood urea increased [Unknown]
  - Localised intraabdominal fluid collection [Unknown]
  - Abdominal distension [Unknown]
  - Abdominal pain [Unknown]
  - Vomiting [Unknown]
  - Pyrexia [Unknown]
  - Aspartate aminotransferase decreased [Unknown]
  - Alanine aminotransferase increased [Unknown]
  - Blood creatinine increased [Unknown]
  - Haemoglobin decreased [Unknown]
